FAERS Safety Report 4760654-7 (Version None)
Quarter: 2005Q3

REPORT INFORMATION
  Report Type: 
  Country: None (occurrence: None)
  Receive Date: 20050826
  Receipt Date: 20050126
  Transmission Date: 20060218
  Serious: Yes (Death)
  Sender: FDA-Public Use
  Company Number: USA-2005-0018560

PATIENT
  Age: 29 Year
  Sex: Male

DRUGS (1)
  1. OXYCONTIN [Suspect]

REACTIONS (1)
  - OVERDOSE [None]
